FAERS Safety Report 7218047-9 (Version None)
Quarter: 2011Q1

REPORT INFORMATION
  Report Type: 
  Country: None (occurrence: None)
  Receive Date: 20110110
  Receipt Date: 20110106
  Transmission Date: 20110831
  Serious: Yes (Death, Hospitalization, Other)
  Sender: FDA-Public Use
  Company Number: US-CELGENEUS-163-21880-10101839

PATIENT
  Sex: Female

DRUGS (1)
  1. REVLIMID [Suspect]
     Route: 048
     Dates: start: 20100823, end: 20100101

REACTIONS (8)
  - NIGHT SWEATS [None]
  - MYELODYSPLASTIC SYNDROME [None]
  - HAEMOPTYSIS [None]
  - RASH [None]
  - PLATELET COUNT DECREASED [None]
  - CONTUSION [None]
  - ANAEMIA [None]
  - ORAL DISORDER [None]
